FAERS Safety Report 6024842-4 (Version None)
Quarter: 2008Q4

REPORT INFORMATION
  Report Type: 
  Country: None (occurrence: None)
  Receive Date: 20081230
  Receipt Date: 20081230
  Transmission Date: 20090506
  Serious: Yes (Other)
  Sender: FDA-Public Use
  Company Number: None

PATIENT
  Age: 59 Year
  Sex: Female
  Weight: 67.1324 kg

DRUGS (1)
  1. EFFEXOR XR [Suspect]
     Indication: DEPRESSION
     Dosage: DAILY

REACTIONS (5)
  - ALTERED VISUAL DEPTH PERCEPTION [None]
  - EYE PAIN [None]
  - MYDRIASIS [None]
  - PHOTOPHOBIA [None]
  - PRODUCT QUALITY ISSUE [None]
